FAERS Safety Report 12499205 (Version 1)
Quarter: 2016Q2

REPORT INFORMATION
  Report Type: Spontaneous
  Country: US (occurrence: None)
  Receive Date: 20160624
  Receipt Date: 20160624
  Transmission Date: 20160815
  Serious: Yes (Other)
  Sender: FDA-Public Use
  Company Number: None

PATIENT
  Age: 68 Year
  Sex: Female
  Weight: 90.72 kg

DRUGS (3)
  1. LOSARTAN. [Concomitant]
     Active Substance: LOSARTAN
  2. METOPROLOL SUCC TAB 50MG ER [Suspect]
     Active Substance: METOPROLOL SUCCINATE
     Indication: HYPERTENSION
     Dosage: 1 TABLET 2X^S/DAY MOUTH
     Route: 048
  3. METOPROLOL SUCC TAB 50MG ER [Suspect]
     Active Substance: METOPROLOL SUCCINATE
     Indication: HEART RATE INCREASED
     Dosage: 1 TABLET 2X^S/DAY MOUTH
     Route: 048

REACTIONS (2)
  - Dizziness [None]
  - Product quality issue [None]
